FAERS Safety Report 10190571 (Version 2)
Quarter: 2014Q2

REPORT INFORMATION
  Report Type: Spontaneous
  Country: FR (occurrence: FR)
  Receive Date: 20140523
  Receipt Date: 20140616
  Transmission Date: 20141212
  Serious: Yes (Hospitalization)
  Sender: FDA-Public Use
  Company Number: FR-ORION CORPORATION ORION PHARMA-ENTC2014-0172

PATIENT
  Age: 83 Year
  Sex: Female

DRUGS (11)
  1. STALEVO [Suspect]
     Dosage: STRENGTH: 150/37.5/200 MG
     Route: 048
     Dates: start: 201105, end: 201107
  2. STALEVO [Suspect]
     Dosage: STRENGTH: 150/37.5/200 MG
     Route: 048
     Dates: start: 201107, end: 20140328
  3. LASILIX [Concomitant]
     Dosage: STRENGTH: 40 MG
     Route: 048
     Dates: start: 201112, end: 201403
  4. LASILIX [Concomitant]
     Route: 048
     Dates: start: 20140303, end: 20140326
  5. SERESTA [Concomitant]
     Route: 065
     Dates: start: 20130302
  6. SERESTA [Concomitant]
     Route: 065
     Dates: start: 20140328
  7. PREVISCAN [Concomitant]
     Dosage: STRENGTH: 20 MG
     Route: 065
     Dates: start: 20131002
  8. BISOPROLOL FUMARATE [Concomitant]
     Route: 065
     Dates: start: 20131002, end: 20140314
  9. LEVOTHYROX [Concomitant]
     Route: 065
  10. LEVOTHYROX [Concomitant]
     Dosage: 137.5 MG DAILY
     Route: 065
     Dates: start: 20140303
  11. FOLIC ACID [Concomitant]
     Route: 065

REACTIONS (11)
  - Malaise [Unknown]
  - Hypotension [Unknown]
  - Ventricular arrhythmia [Unknown]
  - Hypokalaemia [Recovered/Resolved]
  - Hypomagnesaemia [Unknown]
  - Hyperthyroidism [Unknown]
  - Normochromic normocytic anaemia [Recovered/Resolved]
  - International normalised ratio increased [Unknown]
  - Atrial flutter [Unknown]
  - Oedema [Unknown]
  - Bilirubin conjugated increased [Unknown]
